FAERS Safety Report 7265936-5 (Version None)
Quarter: 2011Q1

REPORT INFORMATION
  Report Type: 
  Country: None (occurrence: None)
  Receive Date: 20110120
  Receipt Date: 20110112
  Transmission Date: 20110831
  Serious: Yes (Other)
  Sender: FDA-Public Use
  Company Number: A0905332A

PATIENT
  Age: 26 Year
  Sex: Female

DRUGS (1)
  1. SODIUM MONOFLUOROPHOSPHATE (FORMULATION UNKNOWN) (NA MONOFLUOROPHOSPHA [Suspect]
     Indication: DENTAL CARE
     Dates: start: 20110107, end: 20110109

REACTIONS (2)
  - LAGOPHTHALMOS [None]
  - LACRIMATION INCREASED [None]
